FAERS Safety Report 4657309-6 (Version None)
Quarter: 2005Q2

REPORT INFORMATION
  Report Type: 
  Country: None (occurrence: None)
  Receive Date: 20050408
  Receipt Date: 20041207
  Transmission Date: 20051028
  Serious: No
  Sender: FDA-Public Use
  Company Number: 235985K04USA

PATIENT
  Age: 40 Year
  Sex: Female

DRUGS (4)
  1. REBIF (INTERFERON BETA) [Suspect]
     Indication: MULTIPLE SCLEROSIS
     Dosage: 22 MCG, 3 IN 1 WEEKS, SUBCUTANEOUS
     Route: 058
     Dates: start: 20041115
  2. TYLENOL PM (TYLENOL PM) [Concomitant]
  3. TYLENOL [Concomitant]
  4. UNSPECIFIED HORMONAL PATCH [Concomitant]

REACTIONS (5)
  - BURNING SENSATION [None]
  - DIFFICULTY IN WALKING [None]
  - FATIGUE [None]
  - INSOMNIA [None]
  - LIMB DISCOMFORT [None]
